FAERS Safety Report 9916284 (Version 2)
Quarter: 2014Q1

REPORT INFORMATION
  Report Type: Spontaneous
  Country: IT (occurrence: IT)
  Receive Date: 20140221
  Receipt Date: 20140221
  Transmission Date: 20141002
  Serious: Yes (Hospitalization)
  Sender: FDA-Public Use
  Company Number: PHHY2013IT113540

PATIENT
  Age: 38 Year
  Sex: Female

DRUGS (7)
  1. SIGNIFOR [Suspect]
     Indication: PITUITARY-DEPENDENT CUSHING^S SYNDROME
     Dosage: 0.6 MG, BID
     Route: 058
  2. CARDIOASPIRIN [Concomitant]
     Dosage: 100 MG, UNK
  3. ALLOPURINOL [Concomitant]
     Dosage: 150 MG, UNK
  4. OLMESARTAN MEDOXOMIL [Concomitant]
     Dosage: 20 MG, UNK
  5. AMLODIPINE [Concomitant]
     Dosage: 5 MG, UNK
  6. METFORMIN [Concomitant]
     Dosage: 2500 MG, UNK
  7. INSULIN GLARGINE [Concomitant]

REACTIONS (2)
  - Dermatitis [Recovered/Resolved]
  - Hyperglycaemia [Recovered/Resolved]
